FAERS Safety Report 8390900-2 (Version None)
Quarter: 2012Q2

REPORT INFORMATION
  Report Type: 
  Country: None (occurrence: None)
  Receive Date: 20120529
  Receipt Date: 20120525
  Transmission Date: 20120825
  Serious: Yes (Other)
  Sender: FDA-Public Use
  Company Number: JP-SANOFI-AVENTIS-2012SA037371

PATIENT
  Age: 60 Year
  Sex: Male

DRUGS (4)
  1. LEUCOVORIN CALCIUM [Concomitant]
     Dates: start: 20120116, end: 20120116
  2. FLUOROURACIL [Concomitant]
     Dates: start: 20120116, end: 20120116
  3. ERBITUX [Concomitant]
     Dates: start: 20120116, end: 20120131
  4. OXALIPLATIN [Suspect]
     Indication: LARGE INTESTINE CARCINOMA
     Route: 041
     Dates: start: 20120116, end: 20120116

REACTIONS (2)
  - LEUKOENCEPHALOPATHY [None]
  - MENTAL DISORDER [None]
